FAERS Safety Report 5894102-0 (Version None)
Quarter: 2008Q3

REPORT INFORMATION
  Report Type: 
  Country: None (occurrence: None)
  Receive Date: 20080923
  Receipt Date: 20080620
  Transmission Date: 20090109
  Serious: Yes (Hospitalization)
  Sender: FDA-Public Use
  Company Number: US-ASTRAZENECA-2008AC01581

PATIENT
  Age: 41 Year
  Sex: Female

DRUGS (9)
  1. QUETIAPINE FUMARATE [Suspect]
  2. LITHIUM [Suspect]
     Dosage: CONTROLLED RELEASE
  3. BUPROPION HCL [Suspect]
     Dosage: SUSTAINED RELEASE
  4. CLONAZEPAM [Suspect]
  5. CLONAZEPAM [Suspect]
  6. LAMOTRIGINE [Suspect]
  7. LORAZEPAM [Suspect]
     Dosage: 1 - 2 MG DAILY
  8. VENLAFAXINE HCL [Suspect]
     Dosage: EXTENDED RELEASE
  9. ZIPRASIDONE HCL [Suspect]

REACTIONS (1)
  - DELIRIUM [None]
